FAERS Safety Report 15790304 (Version 1)
Quarter: 2019Q1

REPORT INFORMATION
  Report Type: Spontaneous
  Country: US (occurrence: US)
  Receive Date: 20190104
  Receipt Date: 20190104
  Transmission Date: 20190417
  Serious: No
  Sender: FDA-Public Use
  Company Number: US-SA-2019SA001151

PATIENT
  Age: 67 Year
  Sex: Male

DRUGS (2)
  1. AVAPRO [Suspect]
     Active Substance: IRBESARTAN
     Indication: BLOOD PRESSURE ABNORMAL
     Dosage: 150 MG, QD
  2. NADOLOL. [Concomitant]
     Active Substance: NADOLOL
     Dosage: 40 MG

REACTIONS (1)
  - Rash [Not Recovered/Not Resolved]
